FAERS Safety Report 9251097 (Version 1)
Quarter: 2013Q1

REPORT INFORMATION
  Report Type: Spontaneous
  Country: US (occurrence: None)
  Receive Date: 20130305
  Receipt Date: 20130305
  Transmission Date: 20140127
  Serious: Yes (Hospitalization)
  Sender: FDA-Public Use
  Company Number: 163-21880-12093422

PATIENT
  Age: 60 Year
  Sex: Female

DRUGS (13)
  1. REVLIMID [Suspect]
     Indication: PLASMA CELL MYELOMA
     Dosage: 25 MG, 14 IN 14 D, PO
     Route: 048
     Dates: start: 20120814
  2. ASPIRIN (ACETYLSALICYLIC ACID) (ENTERIC-COATED TABLET) [Concomitant]
     Dosage: 81 MG, 1 IN 1 D, UNK
  3. DEXAMETHASONE (DEXAMETHASONE) (4 MILLIGRAM, TABLETS) [Concomitant]
     Dosage: 20 MG, ON DAYS 1, 2, 4, 5, 8, 9, 11, 12 EACH 21D CYCLE, PO
     Route: 048
  4. FLEXERIL (CYCLOBENZAPRINE HYDROCHLORIDE) (10 MILLIGRAM, TABLETS) [Concomitant]
     Dosage: 30 MG, PRN, PO
     Route: 048
  5. LISINOPRIL (LISINOPRIL) (5 MILLIGRAM, TABLETS) [Concomitant]
     Dosage: 5 MG, 1 IN 1 D, PO
     Route: 048
  6. MISCELLANEOUS DRUG (ALL OTHER THERAPEUTIC PRODUCTS) (CAPSULES) [Concomitant]
     Dosage: 2 TAB, 1 IN 1 D, PO
     Route: 048
  7. MVI (MVI) (TABLETS) [Concomitant]
     Dosage: 1 TAB, 1 IN 1 D, PO
     Route: 048
  8. PROCHLORPERAZINE MALEATE) (PROCHLORPERAZINE MALEATE) (TABLETS) [Concomitant]
     Dosage: 10 MG, PRN, PO
     Route: 048
  9. ULTRAM (TRAMADOL HYDROCHLORIDE) (TABLETS) [Concomitant]
     Dosage: 10 MG, PRN, PO
     Route: 048
  10. VITAMIN C (ASCORBIC ACID) (TABLETS) [Concomitant]
     Dosage: 1000 MG, 2 IN 1 D, PO
     Route: 048
  11. VITAMIN D (ERGOCALCIFEROL) (TABLETS) [Concomitant]
     Dosage: 5000 UNIT, 1 IN 1 D, PO
     Route: 048
  12. VITAMIN D3 (COLECALCIFEROL) (DROPS) [Concomitant]
     Dosage: 400ML, 1 IN 1 D, PO
     Route: 048
  13. ZOFRAN (ONDANSETRON HYDROCHLORIDE) (TABLETS) [Concomitant]
     Dosage: 8 MG, PRN, DISPERSIBLE LINGUAL

REACTIONS (1)
  - Deep vein thrombosis [None]
